FAERS Safety Report 14168265 (Version 2)
Quarter: 2018Q2

REPORT INFORMATION
  Report Type: Spontaneous
  Country: US (occurrence: US)
  Receive Date: 20171107
  Receipt Date: 20180515
  Transmission Date: 20180711
  Serious: No
  Sender: FDA-Public Use
  Company Number: US-SA-2017SA107904

PATIENT
  Age: 73 Year
  Sex: Male

DRUGS (2)
  1. SOLOSTAR [Concomitant]
     Active Substance: DEVICE
     Dates: start: 2016
  2. TOUJEO [Suspect]
     Active Substance: INSULIN GLARGINE
     Indication: DIABETES MELLITUS
     Dosage: DOSE:3 UNIT(S)
     Route: 051
     Dates: start: 2016

REACTIONS (2)
  - Product storage error [Unknown]
  - Drug dose omission [Unknown]

NARRATIVE: CASE EVENT DATE: 201705
